FAERS Safety Report 4290890-8 (Version None)
Quarter: 2004Q1

REPORT INFORMATION
  Report Type: 
  Country: None (occurrence: None)
  Receive Date: 20040209
  Receipt Date: 20040120
  Transmission Date: 20041129
  Serious: Yes (Other)
  Sender: FDA-Public Use
  Company Number: MEDI-0001385

PATIENT
  Age: 66 Year
  Sex: Female

DRUGS (1)
  1. ETHYOL [Suspect]
     Indication: REFRACTORY ANAEMIA
     Dosage: 200 MG/M2, 3 IN 1 WK, INTRAVENOUS
     Route: 042

REACTIONS (3)
  - HAEMOLYTIC ANAEMIA [None]
  - MEAN CELL HAEMOGLOBIN DECREASED [None]
  - PLATELET COUNT DECREASED [None]
